FAERS Safety Report 25362554 (Version 1)
Quarter: 2025Q2

REPORT INFORMATION
  Report Type: Spontaneous
  Country: US (occurrence: None)
  Receive Date: 20250524
  Receipt Date: 20250524
  Transmission Date: 20250716
  Serious: Yes (Disabling)
  Sender: FDA-CTU
  Company Number: None

PATIENT
  Age: 56 Year
  Sex: Female
  Weight: 87.75 kg

DRUGS (9)
  1. CETIRIZINE [Suspect]
     Active Substance: CETIRIZINE HYDROCHLORIDE
     Indication: Multiple allergies
     Dates: start: 20050101, end: 20250519
  2. ATORVASTATIN [Concomitant]
     Active Substance: ATORVASTATIN
  3. ROSACEA CREAM ON FACE [Concomitant]
  4. CETIRIZINE HYDROCHLORIDE [Concomitant]
     Active Substance: CETIRIZINE HYDROCHLORIDE
  5. VITAMINS [Concomitant]
     Active Substance: VITAMINS
  6. LEUTEIN [Concomitant]
  7. EYE DROPS FOR DRY EYES [Concomitant]
  8. VITAMIN D [Concomitant]
     Active Substance: VITAMIN D NOS
  9. IBUPROFEN PRN [Concomitant]

REACTIONS (2)
  - Dry eye [None]
  - Pruritus [None]

NARRATIVE: CASE EVENT DATE: 20250519
